FAERS Safety Report 5278520-X (Version None)
Quarter: 2007Q1

REPORT INFORMATION
  Report Type: 
  Country: None (occurrence: None)
  Receive Date: 20070328
  Receipt Date: 20070315
  Transmission Date: 20070707
  Serious: Yes (Other)
  Sender: FDA-Public Use
  Company Number: HQWYE958116MAR07

PATIENT
  Sex: Female
  Weight: 51 kg

DRUGS (8)
  1. ENBREL [Suspect]
     Indication: RHEUMATOID ARTHRITIS
     Route: 058
     Dates: start: 20061124, end: 20070205
  2. HYDROXYCHLOROQUINE SULFATE [Concomitant]
     Route: 048
     Dates: start: 20060508
  3. SILECE [Concomitant]
     Route: 048
     Dates: start: 20070205, end: 20070304
  4. PREDNISOLONE [Concomitant]
     Route: 048
     Dates: start: 20060501
  5. FOLIC ACID [Concomitant]
     Route: 048
     Dates: start: 20060508
  6. ARTELAC [Concomitant]
     Route: 047
     Dates: start: 20060711
  7. CELEBREX [Concomitant]
     Route: 048
     Dates: start: 20060508
  8. METHOTREXATE [Concomitant]
     Route: 048
     Dates: start: 20060508

REACTIONS (1)
  - TUBERCULOSIS [None]
